FAERS Safety Report 7503250-0 (Version None)
Quarter: 2011Q2

REPORT INFORMATION
  Report Type: 
  Country: None (occurrence: None)
  Receive Date: 20110525
  Receipt Date: 20100712
  Transmission Date: 20111010
  Serious: No
  Sender: FDA-Public Use
  Company Number: A0869750A

PATIENT
  Age: 49 Year
  Sex: Male

DRUGS (4)
  1. OMEPRAZOLE [Concomitant]
  2. BACTROBAN [Suspect]
     Indication: RASH
     Dosage: 1APP TWICE PER DAY
     Route: 061
     Dates: start: 20100710, end: 20100712
  3. UNKNOWN MEDICATION [Concomitant]
  4. STEROIDS [Concomitant]
     Indication: RASH

REACTIONS (1)
  - RASH [None]
